FAERS Safety Report 4970162-6 (Version None)
Quarter: 2006Q2

REPORT INFORMATION
  Report Type: 
  Country: None (occurrence: None)
  Receive Date: 20060406
  Receipt Date: 20060324
  Transmission Date: 20061013
  Serious: Yes (Hospitalization)
  Sender: FDA-Public Use
  Company Number: 2006040636

PATIENT
  Age: 55 Year
  Sex: Female
  Weight: 85 kg

DRUGS (14)
  1. SUTENT [Suspect]
     Indication: RENAL CANCER METASTATIC
     Dosage: 50 MG (50 MG, 1 IN 1 D), ORAL
     Route: 048
     Dates: start: 20060118, end: 20060208
  2. CELLCEPT [Concomitant]
  3. PROGRAF (TICROLIMUS) [Concomitant]
  4. LASIX [Concomitant]
  5. ATENOLOL [Concomitant]
  6. GLYBURIDE [Concomitant]
  7. LEVOTHYROXINE SODIUM [Concomitant]
  8. ZAROXOLYN [Concomitant]
  9. PREDNISONE TAB [Concomitant]
  10. CARDURA [Concomitant]
  11. ZOLOFT [Concomitant]
  12. KEFLEX [Concomitant]
  13. PERCOCET [Concomitant]
  14. TYLENOL [Concomitant]

REACTIONS (4)
  - DIALYSIS [None]
  - HYPOGLYCAEMIA [None]
  - RENAL FAILURE ACUTE [None]
  - SYNCOPE [None]
